FAERS Safety Report 7622784-1 (Version None)
Quarter: 2011Q3

REPORT INFORMATION
  Report Type: 
  Country: None (occurrence: None)
  Receive Date: 20110701
  Receipt Date: 20110124
  Transmission Date: 20111222
  Serious: Yes (Other)
  Sender: FDA-Public Use
  Company Number: 7038486

PATIENT
  Age: 48 Year
  Sex: Female
  Weight: 79 kg

DRUGS (5)
  1. NUVIGIL [Concomitant]
  2. BYSTOLIC [Concomitant]
  3. VITAMIN D [Concomitant]
  4. REBIF [Suspect]
     Indication: RELAPSING-REMITTING MULTIPLE SCLEROSIS
     Dosage: 44 MCG, 3 IN 1 WK, SUBCUTANEOUS
     Route: 058
     Dates: start: 20101011
  5. ALEVE [Concomitant]

REACTIONS (2)
  - SUICIDAL IDEATION [None]
  - DEPRESSION [None]
